FAERS Safety Report 7777787-3 (Version None)
Quarter: 2011Q3

REPORT INFORMATION
  Report Type: 
  Country: None (occurrence: None)
  Receive Date: 20110926
  Receipt Date: 20110915
  Transmission Date: 20111222
  Serious: Yes (Hospitalization)
  Sender: FDA-Public Use
  Company Number: BR-BIOGENIDEC-2011BI035792

PATIENT
  Age: 52 Year
  Sex: Female

DRUGS (8)
  1. LIPANON (FENOFIBRATE) [Concomitant]
     Indication: HYPERCHOLESTEROLAEMIA
     Dates: end: 20110101
  2. SIMVASTATIN [Concomitant]
     Indication: HYPERCHOLESTEROLAEMIA
     Dates: start: 20110701, end: 20110701
  3. LIPANON (FENOFIBRATE) [Concomitant]
     Indication: HYPERTRIGLYCERIDAEMIA
     Dates: end: 20110101
  4. AVONEX [Suspect]
     Indication: MULTIPLE SCLEROSIS
     Route: 030
     Dates: start: 20110619, end: 20110701
  5. LOSARTAN POTASSIUM [Concomitant]
     Indication: HYPERTENSION
     Dates: end: 20110701
  6. ATENOLOL [Concomitant]
     Indication: HYPERTENSION
     Dates: end: 20110701
  7. SIMVASTATIN [Concomitant]
     Indication: HYPERTRIGLYCERIDAEMIA
     Dates: start: 20110701, end: 20110701
  8. METHYLPREDNISOLONE [Concomitant]
     Indication: MULTIPLE SCLEROSIS RELAPSE
     Dates: start: 20110101, end: 20110101

REACTIONS (7)
  - ADRENOCORTICAL STEROID THERAPY [None]
  - BLOOD PRESSURE INCREASED [None]
  - RENAL DISORDER [None]
  - HYPERGLYCAEMIA [None]
  - MALAISE [None]
  - LIVER DISORDER [None]
  - NEPHROLITHIASIS [None]
